FAERS Safety Report 15406168 (Version 1)
Quarter: 2018Q3

REPORT INFORMATION
  Report Type: Spontaneous
  Country: US (occurrence: US)
  Receive Date: 20180918
  Receipt Date: 20180918
  Transmission Date: 20181010
  Serious: Yes (Other)
  Sender: FDA-Public Use
  Company Number: None

PATIENT
  Age: 64 Year
  Sex: Female
  Weight: 69.75 kg

DRUGS (15)
  1. MULTI?VITAMIN [Concomitant]
     Active Substance: .ALPHA.-TOCOPHEROL ACETATE, DL-\ASCORBIC ACID\CYANOCOBALAMIN\FLUORIDE ION\FOLIC ACID\NIACIN\PYRIDOXINE\RIBOFLAVIN\THIAMINE\VITAMIN A\VITAMIN D
  2. OMEPRAZOLE. [Concomitant]
     Active Substance: OMEPRAZOLE
  3. IBUPROPHEN [Concomitant]
     Active Substance: IBUPROFEN
  4. TIZANIDINE. [Concomitant]
     Active Substance: TIZANIDINE
  5. REPATHA [Suspect]
     Active Substance: EVOLOCUMAB
     Indication: HYPERCHOLESTEROLAEMIA
     Dosage: ?          QUANTITY:2 INJECTION(S);OTHER FREQUENCY:ONCE A MONTH;??
     Route: 058
     Dates: start: 20180724, end: 20180918
  6. AMLODIPINE [Concomitant]
     Active Substance: AMLODIPINE BESYLATE
  7. NABUMETONE. [Concomitant]
     Active Substance: NABUMETONE
  8. ATENOLOL. [Concomitant]
     Active Substance: ATENOLOL
  9. FLUOXETINE [Concomitant]
     Active Substance: FLUOXETINE HYDROCHLORIDE
  10. VITAMIN D [Concomitant]
     Active Substance: CHOLECALCIFEROL
  11. PANTOPRAZOLE [Concomitant]
     Active Substance: PANTOPRAZOLE
  12. ASPIRIN. [Concomitant]
     Active Substance: ASPIRIN
  13. BIOTIN [Concomitant]
     Active Substance: BIOTIN
  14. LOSARTAN. [Concomitant]
     Active Substance: LOSARTAN
  15. IRON [Concomitant]
     Active Substance: IRON

REACTIONS (9)
  - Dyspnoea [None]
  - Blood pressure systolic increased [None]
  - Palpitations [None]
  - Suspected product tampering [None]
  - Product container seal issue [None]
  - Fatigue [None]
  - Anaemia [None]
  - Therapy change [None]
  - Blood pressure diastolic decreased [None]

NARRATIVE: CASE EVENT DATE: 20180827
